FAERS Safety Report 5325695-X (Version None)
Quarter: 2007Q2

REPORT INFORMATION
  Report Type: 
  Country: None (occurrence: None)
  Receive Date: 20070509
  Receipt Date: 20070423
  Transmission Date: 20071010
  Serious: Yes (Other)
  Sender: FDA-Public Use
  Company Number: 2007RL000188

PATIENT
  Age: 64 Year
  Sex: Female

DRUGS (8)
  1. OMACOR [Suspect]
     Indication: BLOOD CHOLESTEROL INCREASED
     Dosage: 2 GM; QD; PO
     Route: 048
     Dates: start: 20070307, end: 20070301
  2. OMACOR [Suspect]
     Indication: BLOOD CHOLESTEROL INCREASED
     Dosage: 2 GM; QD; PO
     Route: 048
     Dates: start: 20070401, end: 20070401
  3. XOPENEX [Concomitant]
  4. ADVAIR DISKUS 100/50 [Concomitant]
  5. OMEPRAZOLE [Concomitant]
  6. LORATADINE [Concomitant]
  7. ALBUTEROL /00139501/ [Concomitant]
  8. ^MEDICATION UNKNOWN^ [Concomitant]

REACTIONS (9)
  - FEELING ABNORMAL [None]
  - FLANK PAIN [None]
  - HYPERSENSITIVITY [None]
  - MYALGIA [None]
  - PAIN [None]
  - PAIN IN EXTREMITY [None]
  - PRURITUS [None]
  - RASH [None]
  - SINUS OPERATION [None]
